FAERS Safety Report 16882206 (Version 1)
Quarter: 2019Q4

REPORT INFORMATION
  Report Type: Spontaneous
  Country: CA (occurrence: CA)
  Receive Date: 20191003
  Receipt Date: 20191003
  Transmission Date: 20200122
  Serious: Yes (Hospitalization)
  Sender: FDA-Public Use
  Company Number: CA-BAUSCH-BL-2019-055748

PATIENT
  Age: 22 Year
  Sex: Male

DRUGS (2)
  1. ALLOPURINOL. [Interacting]
     Active Substance: ALLOPURINOL
     Indication: GOUT
     Route: 065
     Dates: start: 2007, end: 2010
  2. BUPROPION. [Suspect]
     Active Substance: BUPROPION
     Indication: GOUT
     Route: 065
     Dates: start: 2010, end: 2010

REACTIONS (2)
  - Stevens-Johnson syndrome [Unknown]
  - Drug interaction [Unknown]

NARRATIVE: CASE EVENT DATE: 2010
